FAERS Safety Report 11368271 (Version 1)
Quarter: 2015Q3

REPORT INFORMATION
  Report Type: Spontaneous
  Country: US (occurrence: None)
  Receive Date: 20150811
  Receipt Date: 20150811
  Transmission Date: 20151125
  Serious: Yes (Other)
  Sender: FDA-Public Use
  Company Number: None

PATIENT
  Age: 14 Year
  Sex: Male
  Weight: 29.48 kg

DRUGS (2)
  1. TAMIFLU [Suspect]
     Active Substance: OSELTAMIVIR PHOSPHATE
     Indication: INFLUENZA
     Route: 048
     Dates: start: 20141220
  2. GROWTH HORMONE [Concomitant]
     Active Substance: SOMATROPIN

REACTIONS (10)
  - Nausea [None]
  - Abnormal dreams [None]
  - Headache [None]
  - Confusional state [None]
  - Discomfort [None]
  - Drug dispensing error [None]
  - Accidental overdose [None]
  - Dizziness [None]
  - Abdominal pain upper [None]
  - Enuresis [None]

NARRATIVE: CASE EVENT DATE: 20141219
